FAERS Safety Report 5384860-6 (Version None)
Quarter: 2007Q3

REPORT INFORMATION
  Report Type: 
  Country: None (occurrence: None)
  Receive Date: 20070706
  Receipt Date: 20070410
  Transmission Date: 20080115
  Serious: No
  Sender: FDA-Public Use
  Company Number: PHEH2007US05027

PATIENT
  Age: 64 Year
  Sex: Male
  Weight: 113.4 kg

DRUGS (1)
  1. TEKTURNA [Suspect]
     Indication: HYPERTENSION
     Dosage: 150 MG;QD
     Dates: start: 20070406, end: 20070409

REACTIONS (4)
  - PARAESTHESIA [None]
  - PRURITUS GENERALISED [None]
  - RASH [None]
  - URTICARIA [None]
